FAERS Safety Report 16689187 (Version 1)
Quarter: 2019Q3

REPORT INFORMATION
  Report Type: Spontaneous
  Country: CA (occurrence: CA)
  Receive Date: 20190809
  Receipt Date: 20190809
  Transmission Date: 20191004
  Serious: Yes (Other)
  Sender: FDA-Public Use
  Company Number: CA-009507513-1908CAN003142

PATIENT
  Sex: Male

DRUGS (1)
  1. SINGULAIR [Suspect]
     Active Substance: MONTELUKAST SODIUM
     Indication: URTICARIA CHOLINERGIC
     Dosage: UNK
     Route: 065

REACTIONS (3)
  - Depressive symptom [Unknown]
  - Treatment failure [Unknown]
  - Suicidal ideation [Unknown]
